FAERS Safety Report 6203256-8 (Version None)
Quarter: 2009Q2

REPORT INFORMATION
  Report Type: 
  Country: None (occurrence: None)
  Receive Date: 20090527
  Receipt Date: 20090520
  Transmission Date: 20091009
  Serious: Yes (Other)
  Sender: FDA-Public Use
  Company Number: US-ALLERGAN-0907069US

PATIENT
  Age: 52 Year
  Sex: Female

DRUGS (7)
  1. RESTASIS [Suspect]
     Indication: DRY EYE
     Route: 047
  2. VALIUM [Concomitant]
     Dosage: UNK, PRN
  3. CLONAZEPAM [Concomitant]
     Dosage: 1 MG, QD
  4. TIZANIDINE HCL [Concomitant]
     Dosage: 4 MG, BID-TID
  5. LORTAB [Concomitant]
     Dosage: 10/550, QID
  6. SEROQUEL [Concomitant]
     Dosage: 200 MG, QD
  7. CELEXA [Concomitant]
     Dosage: 40 MG, QD

REACTIONS (10)
  - CONFUSIONAL STATE [None]
  - DIZZINESS [None]
  - EYE PAIN [None]
  - INFLUENZA [None]
  - INSOMNIA [None]
  - NERVOUSNESS [None]
  - PHOTOPHOBIA [None]
  - PSORIASIS [None]
  - SWELLING FACE [None]
  - VISUAL ACUITY REDUCED [None]
